FAERS Safety Report 5774614-0 (Version None)
Quarter: 2008Q2

REPORT INFORMATION
  Report Type: 
  Country: None (occurrence: None)
  Receive Date: 20080616
  Receipt Date: 20080414
  Transmission Date: 20081010
  Serious: Yes (Hospitalization)
  Sender: FDA-Public Use
  Company Number: US-MERCK-0804USA03995

PATIENT
  Age: 86 Year
  Sex: Male

DRUGS (23)
  1. ZOCOR [Suspect]
     Route: 048
  2. ASPIRIN [Concomitant]
     Route: 065
  3. CLOPIDOGREL BISULFATE [Concomitant]
     Route: 065
  4. [THERAPY UNSPECIFIED] [Concomitant]
     Route: 065
  5. CYPROHEPTADINE HYDROCHLORIDE [Concomitant]
     Route: 065
  6. PEPCID [Suspect]
     Route: 048
  7. FLUNISOLIDE [Concomitant]
     Route: 065
  8. FUROSEMIDE [Concomitant]
     Route: 065
  9. INSULIN, ISOPHANE [Concomitant]
     Route: 065
  10. INSULIN ASPART [Concomitant]
     Route: 065
  11. ALBUTEROL [Concomitant]
     Route: 065
  12. IPRATROPIUM BROMIDE [Concomitant]
     Route: 065
  13. MOMETASONE FUROATE [Concomitant]
     Route: 065
  14. ISOSORBIDE MONONITRATE [Concomitant]
     Route: 065
  15. [THERAPY UNSPECIFIED] [Concomitant]
     Indication: PROPHYLAXIS
     Route: 065
  16. PRINIVIL [Suspect]
     Route: 048
  17. MAGNESIUM GLUCONATE [Concomitant]
     Route: 065
  18. METOCLOPRAMIDE [Concomitant]
     Route: 065
  19. METOPROLOL [Concomitant]
     Route: 065
  20. MODAFINIL [Concomitant]
     Indication: APATHY
     Route: 065
  21. MODAFINIL [Concomitant]
     Indication: FATIGUE
     Route: 065
  22. SERTRALINE HYDROCHLORIDE [Concomitant]
     Route: 065
  23. NITROGLYCERIN [Concomitant]
     Route: 065

REACTIONS (5)
  - ACUTE MYOCARDIAL INFARCTION [None]
  - ANOREXIA [None]
  - DEHYDRATION [None]
  - IMPAIRED GASTRIC EMPTYING [None]
  - NAUSEA [None]
